FAERS Safety Report 16878853 (Version 2)
Quarter: 2019Q4

REPORT INFORMATION
  Report Type: Report from Study
  Country: US (occurrence: US)
  Receive Date: 20191002
  Receipt Date: 20191003
  Transmission Date: 20200122
  Serious: Yes (Death, Other)
  Sender: FDA-Public Use
  Company Number: US-GILEAD-2019-0428873

PATIENT
  Age: 98 Year
  Sex: Female

DRUGS (2)
  1. IDELALISIB [Suspect]
     Active Substance: IDELALISIB
     Dosage: 150 MG, BID
     Route: 048
  2. IDELALISIB [Suspect]
     Active Substance: IDELALISIB
     Indication: LYMPHOMA
     Dosage: 150 MG, QD
     Route: 048
     Dates: start: 20150101

REACTIONS (3)
  - Pneumonia [Unknown]
  - Death [Fatal]
  - Off label use [Not Recovered/Not Resolved]
